FAERS Safety Report 15396517 (Version 1)
Quarter: 2018Q3

REPORT INFORMATION
  Report Type: Spontaneous
  Country: US (occurrence: US)
  Receive Date: 20180912
  Receipt Date: 20180912
  Transmission Date: 20181010
  Serious: Yes (Hospitalization)
  Sender: FDA-Public Use
  Company Number: None

PATIENT
  Age: 91 Year
  Sex: Female
  Weight: 81.19 kg

DRUGS (23)
  1. LOVASTATIN 20 MG TABLET [Concomitant]
  2. METFORMIN 1000 TABLET [Concomitant]
  3. FOLIC ACID 1 MG TABLET [Concomitant]
  4. HYDROCODONE?ACTAMINOPHEN 5?325MG TABLET [Concomitant]
  5. OSTEO BI?FLEX ORAL [Concomitant]
  6. ASPIRIN 81 MG TABLET [Concomitant]
  7. FUROSEMIDE 20 MG TABLET [Concomitant]
     Active Substance: FUROSEMIDE
  8. NOVOLOG U?100 INSULIN ASPART 100 UNIT/ML VIAL [Concomitant]
  9. ACCU?CHEK AVIVA PLUS TEST STRP STRIP [Concomitant]
  10. CILOSTAZOL 50 MG TABLET [Concomitant]
  11. METOPROLOL SUCCINATE 25 MG [Concomitant]
     Active Substance: METOPROLOL SUCCINATE
  12. LEVOTHYROXINE 50 MCG TABLET [Concomitant]
  13. ACIDOPHILLUS CITRUS PECTIN 25 MILLION CELL/100 MG [Concomitant]
  14. AMIODARONE 20 MG TABLET [Concomitant]
  15. CALCIUM CARBONATE 200 MG (500 MG) TABLET CHEWABLE [Concomitant]
  16. CLOPIDOGREL [Suspect]
     Active Substance: CLOPIDOGREL BISULFATE
     Indication: PROMOTION OF PERIPHERAL CIRCULATION
     Dosage: ?          QUANTITY:1 TABLET;?
     Route: 048
     Dates: start: 20180720, end: 20180820
  17. TOUJEO SOLOSTAR U?300 INSULIN 300 UNIT/ML PEN SYRINGE [Concomitant]
  18. AMOXICILLIN?CLAVULANATE 50?125 MG TABLET [Concomitant]
  19. CLOPIDOGREL 75 MG TABLET [Concomitant]
  20. CYANOCOBALAMIN 1,000 MCG/ML SOLUTION [Concomitant]
  21. CHOLECALCIFEROL (VITAMIN D3) 1,000 UNIT CAPSULE [Concomitant]
  22. EASY TOUCH INSULIN SYRINGE 0.3 ML 31 GAUGE X 5/16 SYRINGE [Concomitant]
  23. LISINOPRIL?HYDROCHLOROTHIAZIDE 20?12.5MG TABLET [Concomitant]

REACTIONS (16)
  - Acute kidney injury [None]
  - Somnolence [None]
  - Nausea [None]
  - Asthenia [None]
  - Urine output decreased [None]
  - Abdominal pain upper [None]
  - Heart rate increased [None]
  - Vomiting [None]
  - Fatigue [None]
  - Purpura [None]
  - Constipation [None]
  - Ear pain [None]
  - Abdominal pain [None]
  - Pallor [None]
  - Headache [None]
  - Dehydration [None]

NARRATIVE: CASE EVENT DATE: 20180813
